FAERS Safety Report 14006063 (Version 2)
Quarter: 2018Q4

REPORT INFORMATION
  Report Type: Report from Study
  Country: ZA (occurrence: ZA)
  Receive Date: 20170924
  Receipt Date: 20181130
  Transmission Date: 20190204
  Serious: Yes (Other)
  Sender: FDA-Public Use
  Company Number: PHHY2017ZA138816

PATIENT
  Sex: Male
  Weight: 60 kg

DRUGS (1)
  1. EXJADE [Suspect]
     Active Substance: DEFERASIROX
     Indication: THALASSAEMIA
     Dosage: 1000 MG, QD (AT NIGHT)
     Route: 065
     Dates: start: 2006

REACTIONS (5)
  - Blood creatinine increased [Unknown]
  - Frequent bowel movements [Unknown]
  - Serum ferritin increased [Recovering/Resolving]
  - Peptic ulcer [Recovered/Resolved]
  - Dyspepsia [Unknown]

NARRATIVE: CASE EVENT DATE: 2009
